FAERS Safety Report 21363498 (Version 1)
Quarter: 2022Q3

REPORT INFORMATION
  Report Type: Spontaneous
  Country: CA (occurrence: CA)
  Receive Date: 20220922
  Receipt Date: 20220922
  Transmission Date: 20221027
  Serious: Yes (Other)
  Sender: FDA-Public Use
  Company Number: CA-CELLTRION INC.-2016CA011228

PATIENT

DRUGS (11)
  1. INFLECTRA [Suspect]
     Active Substance: INFLIXIMAB-DYYB
     Indication: Rheumatoid arthritis
     Dosage: 300 MG, Q 0, 2, 6 WEEKS, THEN EVERY 8 WEEKS FOR 12 MONTHS
     Route: 042
     Dates: start: 20151008
  2. INFLECTRA [Suspect]
     Active Substance: INFLIXIMAB-DYYB
     Dosage: 300 MG, Q 0, 2, 6 WEEKS, THEN EVERY 8 WEEKS FOR 12 MONTHS
     Route: 042
     Dates: start: 20151008
  3. INFLECTRA [Suspect]
     Active Substance: INFLIXIMAB-DYYB
     Dosage: 300 MG, CYCLIC: ON WEEKS 0, 2, 6 WEEKS THEN EVERY 8 WEEKS FOR 12 MONTHS
     Route: 042
  4. INFLECTRA [Suspect]
     Active Substance: INFLIXIMAB-DYYB
     Dosage: 300 MG, CYCLIC: ON WEEKS 0, 2, 6 WEEKS THEN EVERY 8 WEEKS FOR 12 MONTHS
     Route: 042
  5. TYLENOL                            /00020001/ [Concomitant]
     Dosage: 500 MG, FREQ: AS NEEDED
     Route: 065
  6. FOLIC ACID [Concomitant]
     Active Substance: FOLIC ACID
     Dosage: 5 MG, DAILY
     Route: 065
     Dates: start: 19990101
  7. FOLIC ACID [Concomitant]
     Active Substance: FOLIC ACID
     Dosage: 5 MG, DAILY
     Dates: start: 1999
  8. METHOTREXATE [Concomitant]
     Active Substance: METHOTREXATE
     Dosage: 200 MG, WEEKLY
     Route: 065
     Dates: start: 20000301
  9. METHOTREXATE [Concomitant]
     Active Substance: METHOTREXATE
     Dosage: 200 MG, WEEKLY
     Dates: start: 200003
  10. NAPROXEN [Concomitant]
     Active Substance: NAPROXEN
     Dosage: 500.00 MG, DAILY
     Route: 065
     Dates: start: 20130101
  11. NAPROXEN [Concomitant]
     Active Substance: NAPROXEN
     Dosage: 500.00 MG, DAILY
     Dates: start: 2013

REACTIONS (8)
  - Blood pressure increased [Unknown]
  - Hypoaesthesia [Recovered/Resolved]
  - Pain in extremity [Recovered/Resolved]
  - Arthralgia [Unknown]
  - Hypoaesthesia [Recovered/Resolved]
  - Pain in extremity [Not Recovered/Not Resolved]
  - Arthralgia [Not Recovered/Not Resolved]
  - Arthralgia [Not Recovered/Not Resolved]

NARRATIVE: CASE EVENT DATE: 20160111
